FAERS Safety Report 5726035-4 (Version None)
Quarter: 2008Q2

REPORT INFORMATION
  Report Type: 
  Country: None (occurrence: None)
  Receive Date: 20080502
  Receipt Date: 20080428
  Transmission Date: 20081010
  Serious: Yes (Death)
  Sender: FDA-Public Use
  Company Number: PHHY2008US04060

PATIENT
  Age: 50 Year
  Sex: Male
  Weight: 103 kg

DRUGS (1)
  1. EXJADE [Suspect]
     Dosage: 3000 UNK, QD
     Route: 048
     Dates: start: 20070813

REACTIONS (1)
  - ACUTE LEUKAEMIA [None]
